FAERS Safety Report 5808479-5 (Version None)
Quarter: 2008Q3

REPORT INFORMATION
  Report Type: 
  Country: None (occurrence: None)
  Receive Date: 20080714
  Receipt Date: 20080707
  Transmission Date: 20090109
  Serious: No
  Sender: FDA-Public Use
  Company Number: CA-ELI_LILLY_AND_COMPANY-CA200805005604

PATIENT
  Sex: Male

DRUGS (2)
  1. ZYPREXA ZYDIS [Suspect]
     Indication: SCHIZOPHRENIA, PARANOID TYPE
     Dosage: 30 MG, DAILY (1/D)
     Dates: start: 20020901
  2. ZYPREXA ZYDIS [Suspect]
     Dosage: 20 MG, DAILY (1/D)

REACTIONS (2)
  - OVERDOSE [None]
  - WHITE BLOOD CELL COUNT DECREASED [None]
